FAERS Safety Report 9893223 (Version 1)
Quarter: 2014Q1

REPORT INFORMATION
  Report Type: Report from Study
  Country: BR (occurrence: BR)
  Receive Date: 20140213
  Receipt Date: 20140213
  Transmission Date: 20141002
  Serious: Yes (Other)
  Sender: FDA-Public Use
  Company Number: PHHY2014BR016518

PATIENT
  Sex: Female
  Weight: 55 kg

DRUGS (6)
  1. GILENYA [Suspect]
     Indication: MULTIPLE SCLEROSIS
     Dosage: 1 DF, UNK
     Route: 048
  2. GILENYA [Suspect]
     Route: 048
  3. BACLOFEN [Concomitant]
     Indication: MULTIPLE SCLEROSIS
     Dates: start: 2005
  4. RETEMIC [Concomitant]
     Indication: DYSURIA
     Dosage: 1 DF, UNK
     Dates: start: 2005
  5. MUVINLAX [Concomitant]
     Indication: ABNORMAL FAECES
     Dosage: UNK UKN, QD
  6. PERIDONA//DOMPERIDONE [Concomitant]
     Indication: DYSPEPSIA
     Dosage: UNK UKN, QD
     Dates: start: 2007

REACTIONS (5)
  - Muscle atrophy [Unknown]
  - Limb discomfort [Unknown]
  - Dizziness [Unknown]
  - Urinary tract infection [Unknown]
  - Weight decreased [Unknown]
